FAERS Safety Report 6187774-7 (Version None)
Quarter: 2009Q2

REPORT INFORMATION
  Report Type: 
  Country: None (occurrence: None)
  Receive Date: 20090513
  Receipt Date: 20090511
  Transmission Date: 20091009
  Serious: Yes (Death, Life-Threatening, Hospitalization)
  Sender: FDA-Public Use
  Company Number: FR-BRISTOL-MYERS SQUIBB COMPANY-14617989

PATIENT
  Age: 81 Year
  Sex: Male

DRUGS (7)
  1. SOTALOL HCL [Suspect]
     Dosage: SOTALOL HCL 80MG
     Route: 048
  2. SINEMET [Suspect]
     Dosage: 1 DOSAGEFORM = 1 TAB
     Route: 048
  3. PREVISCAN [Suspect]
     Dosage: PREVISCAN 20MG
     Route: 048
     Dates: end: 20090316
  4. STABLON [Suspect]
     Dosage: STABLON 12.5 MG TAB 1 DOSAGEFORM = 1 TAB
     Route: 048
  5. STALEVO 100 [Suspect]
     Dosage: 1 DF= 100MG/25MG/200MG
     Route: 048
  6. LERCANIDIPINE [Suspect]
     Dosage: LERCAN 10 MG TAB 1 DOSAGEFORM = 1 TAB
     Route: 048
  7. LASILIX FAIBLE [Suspect]
     Dosage: LASILIX FAIBLE 20 MG TAB 1 DOSAGEFORM = 1 TAB
     Route: 048

REACTIONS (1)
  - CEREBELLAR HAEMATOMA [None]
